FAERS Safety Report 10140468 (Version 2)
Quarter: 2014Q2

REPORT INFORMATION
  Report Type: Report from Study
  Country: JP (occurrence: JP)
  Receive Date: 20140429
  Receipt Date: 20140506
  Transmission Date: 20141212
  Serious: Yes (Hospitalization)
  Sender: FDA-Public Use
  Company Number: JP-BAYER-2014-062869

PATIENT
  Age: 79 Year
  Sex: Male
  Weight: 66 kg

DRUGS (9)
  1. ALPHARADIN [Suspect]
     Indication: PROSTATE CANCER
     Dosage: UNK
     Route: 042
     Dates: start: 20140127
  2. DECADRON [Concomitant]
     Indication: PROSTATE CANCER
     Dosage: 0.5 MG, QD
     Route: 048
     Dates: start: 20130125
  3. ZOLADEX LA [Concomitant]
     Indication: PROSTATE CANCER
     Dosage: 10.8 MG, Q3MON
     Route: 058
     Dates: start: 20071210
  4. ADONA [Concomitant]
     Indication: HAEMORRHAGE PROPHYLAXIS
     Dosage: DAILY DOSE 90 MG
     Route: 048
     Dates: start: 20130808
  5. ETODOLAC [Concomitant]
     Indication: BONE PAIN
     Dosage: DAILY DOSE 400 MG
     Route: 048
     Dates: start: 20131107
  6. DENOSUMAB [Concomitant]
     Indication: BONE PAIN
     Dosage: 120 MG, Q1MON
     Route: 058
     Dates: start: 20120705
  7. SPIRIVA [Concomitant]
     Indication: CHRONIC OBSTRUCTIVE PULMONARY DISEASE
     Dosage: 2.5 ?G, QD
     Route: 055
     Dates: start: 2011
  8. ATORVASTATIN [Concomitant]
     Indication: HYPERCHOLESTEROLAEMIA
     Dosage: 5 MG, QD
     Route: 048
     Dates: start: 201211
  9. VASOLAN [Concomitant]
     Indication: PALPITATIONS
     Dosage: DAILY DOSE 120 MG
     Route: 048
     Dates: start: 20120628

REACTIONS (1)
  - Prostate cancer [Not Recovered/Not Resolved]
